FAERS Safety Report 13711245 (Version 1)
Quarter: 2017Q3

REPORT INFORMATION
  Report Type: Spontaneous
  Country: US (occurrence: US)
  Receive Date: 20170703
  Receipt Date: 20170703
  Transmission Date: 20171127
  Serious: No
  Sender: FDA-Public Use
  Company Number: US-PARI RESPIRATORY EQUIPMENT, INC.-2017PAR00006

PATIENT
  Age: 9 Year
  Sex: Female

DRUGS (13)
  1. FLUTICASONE. [Concomitant]
     Active Substance: FLUTICASONE
  2. KITABIS PAK [Suspect]
     Active Substance: TOBRAMYCIN
     Indication: CYSTIC FIBROSIS
     Dosage: 300 MG 2X/DAY
     Route: 048
     Dates: start: 20150904, end: 20170307
  3. ONFI [Concomitant]
     Active Substance: CLOBAZAM
  4. ADVAIR HFA [Concomitant]
     Active Substance: FLUTICASONE PROPIONATE\SALMETEROL XINAFOATE
  5. CETIRIZINE [Concomitant]
     Active Substance: CETIRIZINE HYDROCHLORIDE
  6. OLOPATADINE. [Concomitant]
     Active Substance: OLOPATADINE
  7. ALBUTEROL. [Concomitant]
     Active Substance: ALBUTEROL
  8. LEVETIRACETAM. [Concomitant]
     Active Substance: LEVETIRACETAM
  9. HYPERSAL [Concomitant]
  10. IPRATROPIUM [Concomitant]
     Active Substance: IPRATROPIUM
  11. MONTELUKAST [Concomitant]
     Active Substance: MONTELUKAST SODIUM
  12. NEXIUM [Concomitant]
     Active Substance: ESOMEPRAZOLE MAGNESIUM
     Dosage: 10 MG, UNK
  13. PREDNISOLONE. [Concomitant]
     Active Substance: PREDNISOLONE

REACTIONS (2)
  - Unevaluable event [Unknown]
  - Wheezing [Unknown]

NARRATIVE: CASE EVENT DATE: 201611
